FAERS Safety Report 8806101 (Version 1)
Quarter: 2012Q4

REPORT INFORMATION
  Report Type: 
  Country: US (occurrence: US)
  Receive Date: 20120925
  Receipt Date: 20120925
  Transmission Date: 20130627
  Serious: No
  Sender: FDA-Public Use
  Company Number: US-009507513-1209USA008116

PATIENT
  Sex: Female

DRUGS (4)
  1. SAPHRIS [Suspect]
     Dosage: 10 mg, UNK
     Route: 060
     Dates: start: 201111, end: 201209
  2. PAXIL [Concomitant]
     Dosage: UNK mg, UNK
  3. LAMICTAL [Concomitant]
  4. NEURONTIN [Concomitant]

REACTIONS (2)
  - Oromandibular dystonia [Unknown]
  - Bruxism [Unknown]
